FAERS Safety Report 5121815-0 (Version None)
Quarter: 2006Q4

REPORT INFORMATION
  Report Type: 
  Country: None (occurrence: None)
  Receive Date: 20061006
  Receipt Date: 20060928
  Transmission Date: 20070319
  Serious: Yes (Hospitalization)
  Sender: FDA-Public Use
  Company Number: FR-ROCHE-465398

PATIENT
  Age: 82 Year
  Sex: Female
  Weight: 82 kg

DRUGS (7)
  1. ROCEPHIN [Suspect]
     Indication: DRUG USE FOR UNKNOWN INDICATION
     Dosage: FORMULATION REPORTED AS INJECTABLE SOLUTION.
     Route: 042
     Dates: start: 20060804, end: 20060805
  2. AUGMENTIN [Suspect]
     Route: 048
     Dates: start: 20060805, end: 20060829
  3. AUGMENTIN [Suspect]
     Route: 048
     Dates: start: 20060727, end: 20060803
  4. ROVAMYCINE [Suspect]
     Indication: DRUG USE FOR UNKNOWN INDICATION
     Route: 048
     Dates: start: 20060805, end: 20060829
  5. TILDIEM [Concomitant]
     Route: 048
     Dates: end: 20060829
  6. VENTOLIN [Concomitant]
     Route: 055
     Dates: start: 20060804, end: 20060805
  7. LASILIX 40 [Concomitant]
     Dosage: ON 05 AUGUST 2006, THE DOSAGE REGIMEN WAS INCREASED.
     Route: 048

REACTIONS (2)
  - RENAL FAILURE [None]
  - VASCULAR PURPURA [None]
